FAERS Safety Report 7281850-3 (Version None)
Quarter: 2011Q1

REPORT INFORMATION
  Report Type: 
  Country: None (occurrence: None)
  Receive Date: 20110208
  Receipt Date: 20110126
  Transmission Date: 20110831
  Serious: Yes (Other)
  Sender: FDA-Public Use
  Company Number: GB-MYLANLABS-2011S1001760

PATIENT
  Age: 21 Year
  Sex: Female

DRUGS (4)
  1. LAMOTRIGINE [Suspect]
     Indication: EPILEPSY
  2. CLONAZEPAM [Suspect]
     Indication: EPILEPSY
  3. LEVETIRACETAM [Suspect]
     Indication: PRODUCT USED FOR UNKNOWN INDICATION
  4. ACETAZOLAMIDE [Suspect]
     Indication: EPILEPSY

REACTIONS (5)
  - FEAR [None]
  - SPEECH DISORDER [None]
  - GRAND MAL CONVULSION [None]
  - FEELING ABNORMAL [None]
  - NERVOUSNESS [None]
